FAERS Safety Report 21576507 (Version 2)
Quarter: 2023Q1

REPORT INFORMATION
  Report Type: Report from Study
  Country: US (occurrence: US)
  Receive Date: 20221110
  Receipt Date: 20230102
  Transmission Date: 20230418
  Serious: No
  Sender: FDA-Public Use
  Company Number: US-UCBSA-2022064443

PATIENT
  Age: 29 Year
  Sex: Male

DRUGS (19)
  1. FINTEPLA [Suspect]
     Active Substance: FENFLURAMINE
     Indication: Seizure
     Dosage: 3.9 MILLILITER, 2X/DAY (BID)
     Route: 048
     Dates: start: 2022
  2. NAYZILAM [Suspect]
     Active Substance: MIDAZOLAM
     Indication: Seizure
     Dosage: 5MG, 1 SPRAY IN NOSTRIL AFTER 5 MINUTES OF SEIZING
     Route: 045
  3. DEPAKOTE [Concomitant]
     Active Substance: DIVALPROEX SODIUM
     Indication: Seizure
  4. TOPAMAX [Concomitant]
     Active Substance: TOPIRAMATE
     Indication: Seizure
  5. ONFI [Concomitant]
     Active Substance: CLOBAZAM
     Indication: Seizure
  6. STIRIPENTOL [Concomitant]
     Active Substance: STIRIPENTOL
     Indication: Seizure
  7. CARNITOR [Concomitant]
     Active Substance: LEVOCARNITINE
     Indication: Seizure
  8. SYNTHROID [Concomitant]
     Active Substance: LEVOTHYROXINE SODIUM
     Indication: Thyroid disorder
  9. SINGULAIR [Concomitant]
     Active Substance: MONTELUKAST SODIUM
     Indication: Hypersensitivity
  10. CALCIUM [Concomitant]
     Active Substance: CALCIUM
     Indication: Product used for unknown indication
  11. MAGNESIUM [Concomitant]
     Active Substance: MAGNESIUM
     Indication: Product used for unknown indication
  12. PSYLLIUM SEED HUSK [Concomitant]
     Indication: Product used for unknown indication
  13. FOLIC ACID [Concomitant]
     Active Substance: FOLIC ACID
     Indication: Product used for unknown indication
  14. IRON [Concomitant]
     Active Substance: IRON
     Indication: Product used for unknown indication
  15. VITAMIN D NOS [Concomitant]
     Active Substance: VITAMIN D NOS
     Indication: Product used for unknown indication
  16. VITAMINS NOS [Concomitant]
     Active Substance: VITAMINS
     Indication: Product used for unknown indication
  17. VITAMIN C [Concomitant]
     Active Substance: ASCORBIC ACID
     Indication: Product used for unknown indication
  18. MELATONIN [Concomitant]
     Active Substance: MELATONIN
     Indication: Sleep disorder
  19. VITAMIN B12 [Concomitant]
     Active Substance: CYANOCOBALAMIN
     Indication: Product used for unknown indication

REACTIONS (1)
  - Aggression [Not Recovered/Not Resolved]

NARRATIVE: CASE EVENT DATE: 20221104
